FAERS Safety Report 8810275 (Version 1)
Quarter: 2012Q4

REPORT INFORMATION
  Report Type: 
  Country: US (occurrence: US)
  Receive Date: 20120926
  Receipt Date: 20120926
  Transmission Date: 20130627
  Serious: Yes (Congenital Anomaly)
  Sender: FDA-Public Use
  Company Number: US-009507513-1108USA01096B1

PATIENT
  Sex: Male
  Weight: 3.87 kg

DRUGS (5)
  1. ISENTRESS [Suspect]
     Dosage: 800 mg, qd
     Route: 064
     Dates: start: 20110606
  2. COMBIVIR [Suspect]
     Dosage: 2 DF, qd
     Route: 064
     Dates: start: 20110505
  3. KALETRA [Suspect]
     Dosage: 4 DF, qd
     Route: 064
     Dates: start: 20110505
  4. RETROVIR [Suspect]
     Dosage: 1 mg, qd
     Route: 064
     Dates: start: 20110704, end: 20110706
  5. RETROVIR [Suspect]
     Dosage: 2 mg, qd
     Route: 042
     Dates: start: 20110704, end: 20110704

REACTIONS (2)
  - Hypospadias [Unknown]
  - Foetal exposure during pregnancy [Unknown]
